FAERS Safety Report 14450723 (Version 1)
Quarter: 2018Q1

REPORT INFORMATION
  Report Type: Spontaneous
  Country: CZ (occurrence: CZ)
  Receive Date: 20180129
  Receipt Date: 20180129
  Transmission Date: 20180509
  Serious: Yes (Other)
  Sender: FDA-Public Use
  Company Number: CZ-ELI_LILLY_AND_COMPANY-CZ201801009175

PATIENT
  Sex: Male
  Weight: 76 kg

DRUGS (6)
  1. HUMULIN N [Suspect]
     Active Substance: INSULIN HUMAN
     Indication: TYPE 2 DIABETES MELLITUS
     Dosage: 12 IU, EACH EVENING
     Route: 058
     Dates: start: 2014
  2. JANUVIA [Concomitant]
     Active Substance: SITAGLIPTIN PHOSPHATE
     Indication: MYOCARDIAL ISCHAEMIA
     Dosage: UNK UNK, UNKNOWN
     Route: 065
  3. HUMULIN R [Suspect]
     Active Substance: INSULIN HUMAN
     Dosage: 8 IU, DAILY
     Route: 058
     Dates: start: 2014
  4. HUMULIN R [Suspect]
     Active Substance: INSULIN HUMAN
     Dosage: 9 IU, DAILY
     Route: 058
     Dates: start: 2014
  5. HUMULIN R [Suspect]
     Active Substance: INSULIN HUMAN
     Indication: TYPE 2 DIABETES MELLITUS
     Dosage: 16 IU, DAILY
     Route: 058
     Dates: start: 2014
  6. METFORMIN [Concomitant]
     Active Substance: METFORMIN HYDROCHLORIDE
     Indication: TYPE 2 DIABETES MELLITUS
     Dosage: UNK UNK, UNKNOWN
     Route: 065

REACTIONS (2)
  - Hypoglycaemia [Unknown]
  - Diabetic retinopathy [Unknown]
